FAERS Safety Report 14566335 (Version 1)
Quarter: 2018Q1

REPORT INFORMATION
  Report Type: Spontaneous
  Country: US (occurrence: US)
  Receive Date: 20180223
  Receipt Date: 20180223
  Transmission Date: 20180509
  Serious: Yes (Hospitalization, Disabling)
  Sender: FDA-Public Use
  Company Number: US-JNJFOC-20180224169

PATIENT
  Sex: Male

DRUGS (1)
  1. INVOKANA [Suspect]
     Active Substance: CANAGLIFLOZIN
     Indication: DIABETES MELLITUS
     Route: 048
     Dates: start: 2016

REACTIONS (5)
  - Emotional distress [Unknown]
  - Amputation [Unknown]
  - Skin ulcer [Unknown]
  - Osteomyelitis [Unknown]
  - Renal failure [Unknown]

NARRATIVE: CASE EVENT DATE: 20170112
